FAERS Safety Report 8226721-0 (Version None)
Quarter: 2012Q1

REPORT INFORMATION
  Report Type: 
  Country: None (occurrence: None)
  Receive Date: 20120322
  Receipt Date: 20120310
  Transmission Date: 20120608
  Serious: Yes (Hospitalization)
  Sender: FDA-Public Use
  Company Number: US-BAYER-2011-047513

PATIENT
  Age: 38 Year
  Sex: Female
  Weight: 79.365 kg

DRUGS (5)
  1. YAZ [Suspect]
     Indication: PREMENSTRUAL SYNDROME
     Dosage: UNK
     Route: 048
     Dates: start: 20080701, end: 20090629
  2. YAZ [Suspect]
  3. YAZ [Suspect]
     Indication: MENSTRUATION IRREGULAR
  4. ALLEGRA [Concomitant]
     Dosage: 180 MG, UNK
     Dates: start: 20090227
  5. FLONASE [Concomitant]
     Dosage: 0.05 MG, UNK
     Route: 045
     Dates: start: 20090227

REACTIONS (11)
  - EMOTIONAL DISTRESS [None]
  - SUPERIOR SAGITTAL SINUS THROMBOSIS [None]
  - MIGRAINE [None]
  - PSYCHOLOGICAL TRAUMA [None]
  - VISION BLURRED [None]
  - PAIN [None]
  - ANXIETY [None]
  - RENAL VEIN THROMBOSIS [None]
  - PELVIC VENOUS THROMBOSIS [None]
  - INTRACRANIAL VENOUS SINUS THROMBOSIS [None]
  - FEAR [None]
